FAERS Safety Report 16503110 (Version 1)
Quarter: 2019Q3

REPORT INFORMATION
  Report Type: Spontaneous
  Country: US (occurrence: US)
  Receive Date: 20190628
  Receipt Date: 20190628
  Transmission Date: 20191004
  Serious: No
  Sender: FDA-Public Use
  Company Number: None

PATIENT
  Age: 53 Year
  Sex: Female
  Weight: 139.25 kg

DRUGS (1)
  1. BETADINE [Suspect]
     Active Substance: POVIDONE-IODINE

REACTIONS (1)
  - Application site rash [None]

NARRATIVE: CASE EVENT DATE: 20190626
